FAERS Safety Report 7554760-1 (Version None)
Quarter: 2011Q2

REPORT INFORMATION
  Report Type: 
  Country: None (occurrence: None)
  Receive Date: 20110617
  Receipt Date: 20110520
  Transmission Date: 20111010
  Serious: Yes (Other)
  Sender: FDA-Public Use
  Company Number: JP-ROCHE-782322

PATIENT
  Sex: Male
  Weight: 54 kg

DRUGS (41)
  1. XELODA [Suspect]
     Route: 048
     Dates: start: 20100708, end: 20100722
  2. XELODA [Suspect]
     Route: 048
     Dates: start: 20100909, end: 20100923
  3. BEVACIZUMAB [Suspect]
     Route: 041
     Dates: start: 20100527, end: 20100527
  4. BEVACIZUMAB [Suspect]
     Route: 041
     Dates: start: 20100729, end: 20100729
  5. BEVACIZUMAB [Suspect]
     Route: 041
     Dates: start: 20101111, end: 20101111
  6. BEVACIZUMAB [Suspect]
     Route: 041
     Dates: start: 20101224, end: 20101224
  7. OXALIPLATIN [Suspect]
     Indication: COLON CANCER METASTATIC
     Route: 041
     Dates: start: 20100408, end: 20100408
  8. XELODA [Suspect]
     Route: 048
     Dates: start: 20100506, end: 20100520
  9. XELODA [Suspect]
     Route: 048
     Dates: start: 20110331, end: 20110414
  10. BEVACIZUMAB [Suspect]
     Route: 041
     Dates: start: 20100930, end: 20100930
  11. XELODA [Suspect]
     Route: 048
     Dates: start: 20110310, end: 20110324
  12. BEVACIZUMAB [Suspect]
     Route: 041
     Dates: start: 20100506, end: 20100506
  13. BEVACIZUMAB [Suspect]
     Route: 041
     Dates: start: 20100617, end: 20100617
  14. BEVACIZUMAB [Suspect]
     Route: 041
     Dates: start: 20110421, end: 20110421
  15. OXALIPLATIN [Suspect]
     Route: 041
     Dates: start: 20100617, end: 20100617
  16. XELODA [Suspect]
     Route: 048
     Dates: start: 20100617, end: 20100701
  17. XELODA [Suspect]
     Route: 048
     Dates: start: 20100930, end: 20101014
  18. BEVACIZUMAB [Suspect]
     Route: 041
     Dates: start: 20101021, end: 20101021
  19. BEVACIZUMAB [Suspect]
     Route: 041
     Dates: start: 20101202, end: 20101202
  20. XELODA [Suspect]
     Route: 048
     Dates: start: 20100729, end: 20100812
  21. XELODA [Suspect]
     Route: 048
     Dates: start: 20100819, end: 20100902
  22. XELODA [Suspect]
     Route: 048
     Dates: start: 20101021, end: 20101104
  23. XELODA [Suspect]
     Route: 048
     Dates: start: 20101111, end: 20101125
  24. BEVACIZUMAB [Suspect]
     Route: 041
     Dates: start: 20100708, end: 20100708
  25. BEVACIZUMAB [Suspect]
     Route: 041
     Dates: start: 20100909, end: 20100909
  26. BEVACIZUMAB [Suspect]
     Route: 041
     Dates: start: 20110310, end: 20110310
  27. BEVACIZUMAB [Suspect]
     Route: 041
     Dates: start: 20110203, end: 20110203
  28. XELODA [Suspect]
     Indication: COLON CANCER METASTATIC
     Route: 048
     Dates: start: 20100408, end: 20100422
  29. XELODA [Suspect]
     Route: 048
     Dates: start: 20100527, end: 20100610
  30. XELODA [Suspect]
     Route: 048
     Dates: start: 20110203, end: 20110217
  31. BEVACIZUMAB [Suspect]
     Route: 041
     Dates: start: 20100819, end: 20100819
  32. BEVACIZUMAB [Suspect]
     Route: 041
     Dates: start: 20110113, end: 20110113
  33. BEVACIZUMAB [Suspect]
     Route: 041
     Dates: start: 20110331, end: 20110331
  34. OXALIPLATIN [Suspect]
     Route: 041
     Dates: start: 20100527, end: 20100527
  35. OXALIPLATIN [Suspect]
     Route: 041
     Dates: start: 20100708, end: 20100708
  36. OXALIPLATIN [Suspect]
     Route: 041
     Dates: start: 20100729, end: 20100729
  37. XELODA [Suspect]
     Route: 048
     Dates: start: 20101111, end: 20101125
  38. XELODA [Suspect]
     Route: 048
     Dates: start: 20101224, end: 20110107
  39. XELODA [Suspect]
     Route: 048
     Dates: start: 20110113, end: 20110127
  40. XELODA [Suspect]
     Route: 048
     Dates: start: 20110421, end: 20110505
  41. BEVACIZUMAB [Suspect]
     Indication: COLON CANCER METASTATIC
     Route: 041
     Dates: start: 20100408, end: 20100408

REACTIONS (7)
  - NEUROPATHY PERIPHERAL [None]
  - PALMAR-PLANTAR ERYTHRODYSAESTHESIA SYNDROME [None]
  - PROTEINURIA [None]
  - EPISTAXIS [None]
  - BLOOD BILIRUBIN INCREASED [None]
  - PIGMENTATION DISORDER [None]
  - DIARRHOEA [None]
